FAERS Safety Report 10298946 (Version 1)
Quarter: 2014Q3

REPORT INFORMATION
  Report Type: Spontaneous
  Country: US (occurrence: US)
  Receive Date: 20140711
  Receipt Date: 20140711
  Transmission Date: 20150326
  Serious: No
  Sender: FDA-Public Use
  Company Number: US-GILEAD-2013-0081550

PATIENT
  Age: 72 Year
  Sex: Male

DRUGS (11)
  1. ASACOL [Concomitant]
     Active Substance: MESALAMINE
  2. LOSARTAN POTASSIUM. [Concomitant]
     Active Substance: LOSARTAN POTASSIUM
  3. FORADIL [Concomitant]
     Active Substance: FORMOTEROL FUMARATE
  4. CARVEDILOL. [Concomitant]
     Active Substance: CARVEDILOL
  5. LIPITOR [Concomitant]
     Active Substance: ATORVASTATIN CALCIUM
  6. SERTRALINE [Concomitant]
     Active Substance: SERTRALINE HYDROCHLORIDE
  7. FENOFIBRATE. [Concomitant]
     Active Substance: FENOFIBRATE
  8. SINGULAIR [Concomitant]
     Active Substance: MONTELUKAST SODIUM
  9. LETAIRIS [Suspect]
     Active Substance: AMBRISENTAN
     Indication: PULMONARY ARTERIAL HYPERTENSION
     Dosage: 5 MG, QD
     Route: 048
     Dates: start: 20130720
  10. DEXILANT [Concomitant]
     Active Substance: DEXLANSOPRAZOLE
  11. ALVESCO [Concomitant]
     Active Substance: CICLESONIDE

REACTIONS (2)
  - Nasal congestion [Not Recovered/Not Resolved]
  - Epistaxis [Not Recovered/Not Resolved]

NARRATIVE: CASE EVENT DATE: 20130805
